FAERS Safety Report 7724431-7 (Version None)
Quarter: 2011Q3

REPORT INFORMATION
  Report Type: 
  Country: None (occurrence: None)
  Receive Date: 20110829
  Receipt Date: 20110817
  Transmission Date: 20111222
  Serious: Yes (Other)
  Sender: FDA-Public Use
  Company Number: 2011AP001791

PATIENT
  Age: 56 Year
  Sex: Female

DRUGS (6)
  1. LISINOPRIL [Concomitant]
  2. LYRICA [Suspect]
     Indication: NEUROPATHY PERIPHERAL
     Dosage: 150 MG;TID;PO
     Route: 048
  3. FISH OIL [Concomitant]
  4. TRAZODONE HYDROCHLORIDE [Suspect]
     Indication: SLEEP DISORDER
  5. CALCIUM CARBONATE [Concomitant]
  6. MULTI-VITAMINS [Concomitant]

REACTIONS (19)
  - NASAL CONGESTION [None]
  - HYPOPHAGIA [None]
  - ACCIDENT [None]
  - VEIN PAIN [None]
  - VARICOSE VEIN [None]
  - OROPHARYNGEAL PAIN [None]
  - NASOPHARYNGITIS [None]
  - PAIN IN EXTREMITY [None]
  - LIVER DISORDER [None]
  - OEDEMA PERIPHERAL [None]
  - INSOMNIA [None]
  - JOINT SWELLING [None]
  - BACK PAIN [None]
  - INTERVERTEBRAL DISC PROTRUSION [None]
  - VASCULAR STENOSIS [None]
  - PAIN [None]
  - SCIATICA [None]
  - ABASIA [None]
  - EXOSTOSIS [None]
